FAERS Safety Report 14951252 (Version 1)
Quarter: 2018Q2

REPORT INFORMATION
  Report Type: Spontaneous
  Country: US (occurrence: US)
  Receive Date: 20180509
  Receipt Date: 20180509
  Transmission Date: 20180711
  Serious: No
  Sender: FDA-Public Use
  Company Number: None

PATIENT
  Age: 31 Year
  Sex: Female
  Weight: 55.8 kg

DRUGS (3)
  1. MVI [Concomitant]
     Active Substance: VITAMINS
  2. MIRENA [Suspect]
     Active Substance: LEVONORGESTREL
     Indication: ENDOMETRIOSIS
     Dosage: ?          OTHER FREQUENCY:IMPLANTED DEVICE;OTHER ROUTE:INTRAUTERINE IMPLANTATION?
  3. PRILOSEC [Concomitant]
     Active Substance: OMEPRAZOLE MAGNESIUM

REACTIONS (7)
  - Panic attack [None]
  - Palpitations [None]
  - Insomnia [None]
  - Nausea [None]
  - Vomiting [None]
  - Gastrooesophageal reflux disease [None]
  - Condition aggravated [None]

NARRATIVE: CASE EVENT DATE: 20180502
